FAERS Safety Report 24812191 (Version 1)
Quarter: 2025Q1

REPORT INFORMATION
  Report Type: Report from Study
  Country: CN (occurrence: CN)
  Receive Date: 20250106
  Receipt Date: 20250106
  Transmission Date: 20250408
  Serious: Yes (Other)
  Sender: ALEXION PHARMACEUTICALS
  Company Number: CN-AstraZeneca-CH-00776529A

PATIENT

DRUGS (6)
  1. DAPAGLIFLOZIN [Suspect]
     Active Substance: DAPAGLIFLOZIN
     Indication: Type 2 diabetes mellitus
     Dosage: 10 MILLIGRAM, QD, TAKEN IN THE EARLY MORNING, WITH AN INITIAL DOSE OF 10 MG
     Route: 065
  2. DAPAGLIFLOZIN [Suspect]
     Active Substance: DAPAGLIFLOZIN
     Dosage: 10 MILLIGRAM, QD, TAKEN IN THE EARLY MORNING, WITH AN INITIAL DOSE OF 10 MG
     Route: 065
  3. DAPAGLIFLOZIN [Suspect]
     Active Substance: DAPAGLIFLOZIN
     Dosage: 10 MILLIGRAM, QD, TAKEN IN THE EARLY MORNING, WITH AN INITIAL DOSE OF 10 MG
     Route: 065
  4. DAPAGLIFLOZIN [Suspect]
     Active Substance: DAPAGLIFLOZIN
     Dosage: 10 MILLIGRAM, QD, TAKEN IN THE EARLY MORNING, WITH AN INITIAL DOSE OF 10 MG
     Route: 065
  5. METFORMIN [Suspect]
     Active Substance: METFORMIN HYDROCHLORIDE
     Indication: Type 2 diabetes mellitus
     Dosage: 0.5 GRAM, BID, TAKEN WITH MEALS IN THE MORNING AND EVENING
     Route: 065
  6. METFORMIN [Suspect]
     Active Substance: METFORMIN HYDROCHLORIDE
     Dosage: 0.5 GRAM, BID, TAKEN WITH MEALS IN THE MORNING AND EVENING
     Route: 065

REACTIONS (1)
  - Ketosis [Unknown]
